FAERS Safety Report 6536161-8 (Version None)
Quarter: 2010Q1

REPORT INFORMATION
  Report Type: 
  Country: None (occurrence: None)
  Receive Date: 20100113
  Receipt Date: 20091021
  Transmission Date: 20100710
  Serious: No
  Sender: FDA-Public Use
  Company Number: US-ALLERGAN-0914619US

PATIENT
  Age: 52 Year
  Sex: Female

DRUGS (3)
  1. LATISSE [Suspect]
     Indication: HYPOTRICHOSIS
     Dosage: 1 GTT, QHS
     Route: 061
     Dates: start: 20090801
  2. ANOTHER UNKNOWN CREAM [Concomitant]
     Route: 061
  3. REWETTING DROPS [Concomitant]
     Dosage: UNK

REACTIONS (1)
  - HORDEOLUM [None]
